FAERS Safety Report 16821545 (Version 4)
Quarter: 2019Q4

REPORT INFORMATION
  Report Type: Spontaneous
  Country: US (occurrence: US)
  Receive Date: 20190918
  Receipt Date: 20191231
  Transmission Date: 20200122
  Serious: Yes (Hospitalization, Other)
  Sender: FDA-Public Use
  Company Number: US-PFIZER INC-2019403137

PATIENT
  Age: 65 Year
  Sex: Male
  Weight: 126.98 kg

DRUGS (8)
  1. MAGNESIUM [Concomitant]
     Active Substance: MAGNESIUM
     Dosage: 1500 MG, DAILY
  2. COZAAR [Concomitant]
     Active Substance: LOSARTAN POTASSIUM
     Dosage: 100 MG, 1X/DAY [1 PILL BED]
  3. OXY [ACETYLSALICYLIC ACID] [Concomitant]
     Dosage: 30 MG, 3X/DAY
  4. URO MP [Concomitant]
     Dosage: UNK, 3X/DAY
  5. LYRICA [Suspect]
     Active Substance: PREGABALIN
     Indication: NEURALGIA
     Dosage: 150 MG, 3X/DAY
     Dates: start: 201802
  6. OMEPRAZOLE. [Concomitant]
     Active Substance: OMEPRAZOLE
     Dosage: 20 MG, 1X/DAY [20 MG IN AM]
  7. HYDROCHLOROTHIAZIDE. [Concomitant]
     Active Substance: HYDROCHLOROTHIAZIDE
     Dosage: 25 MG, 1X/DAY [1 PILL AM]
  8. MOTRIN [Concomitant]
     Active Substance: IBUPROFEN
     Dosage: 4 DF, 1X/DAY (4 PILLS IN AM)

REACTIONS (2)
  - Anal cancer [Not Recovered/Not Resolved]
  - Rectal cancer recurrent [Unknown]
